FAERS Safety Report 10348169 (Version 1)
Quarter: 2014Q3

REPORT INFORMATION
  Report Type: Spontaneous
  Country: CN (occurrence: CN)
  Receive Date: 20140729
  Receipt Date: 20140729
  Transmission Date: 20150326
  Serious: Yes (Other)
  Sender: FDA-Public Use
  Company Number: CN-PFIZER INC-2014205954

PATIENT
  Age: 55 Year
  Sex: Male
  Weight: 65 kg

DRUGS (2)
  1. ADVIL [Suspect]
     Active Substance: IBUPROFEN
     Indication: HEADACHE
  2. ADVIL [Suspect]
     Active Substance: IBUPROFEN
     Indication: PYREXIA
     Dosage: 10 ML, 3 TIMES DAILY
     Route: 048
     Dates: start: 20130809, end: 20130809

REACTIONS (2)
  - Pruritus generalised [Recovered/Resolved]
  - Rash maculo-papular [Recovered/Resolved]
